FAERS Safety Report 9957409 (Version 1)
Quarter: 2014Q1

REPORT INFORMATION
  Report Type: Report from Study
  Country: US (occurrence: US)
  Receive Date: 20140304
  Receipt Date: 20140304
  Transmission Date: 20141002
  Serious: No
  Sender: FDA-Public Use
  Company Number: US-ABBVIE-13P-163-1094523-00

PATIENT
  Age: 53 Year
  Sex: Male

DRUGS (7)
  1. HUMIRA [Suspect]
     Indication: PSORIASIS
     Dates: start: 20130510, end: 20130510
  2. HUMIRA [Suspect]
     Dates: start: 20130517
  3. LEVOTHYROXINE [Concomitant]
     Indication: HYPOTHYROIDISM
  4. GABAPENTIN [Concomitant]
     Indication: NERVOUSNESS
  5. SIMVASTATIN [Concomitant]
     Indication: BLOOD CHOLESTEROL
     Dosage: AT NIGHT
  6. TESTOSTERONE [Concomitant]
     Indication: PRODUCT USED FOR UNKNOWN INDICATION
     Dosage: 1.5CC/300MG IM INJECTION
     Route: 050
  7. CLOBETASOL [Concomitant]
     Indication: PSORIASIS
     Dosage: AS NEEDED
     Route: 061

REACTIONS (3)
  - Sinus disorder [Not Recovered/Not Resolved]
  - Ear infection [Not Recovered/Not Resolved]
  - Oropharyngeal pain [Not Recovered/Not Resolved]
